FAERS Safety Report 10551408 (Version 1)
Quarter: 2014Q4

REPORT INFORMATION
  Report Type: Spontaneous
  Country: US (occurrence: None)
  Receive Date: 20141028
  Receipt Date: 20141028
  Transmission Date: 20150529
  Serious: Yes (Life-Threatening, Hospitalization)
  Sender: FDA-Public Use
  Company Number: None

PATIENT
  Age: 69 Year
  Sex: Male
  Weight: 69.4 kg

DRUGS (1)
  1. TESTOSTERONE. [Suspect]
     Active Substance: TESTOSTERONE
     Indication: HYPOGONADISM
     Dosage: 1200-1300MG  Q6MO  IMPLANTED PELLET
     Dates: start: 20130403, end: 20140317

REACTIONS (2)
  - Myocardial infarction [None]
  - Prostatic specific antigen increased [None]

NARRATIVE: CASE EVENT DATE: 20140601
